FAERS Safety Report 24578876 (Version 1)
Quarter: 2024Q4

REPORT INFORMATION
  Report Type: Report from Study
  Country: US (occurrence: US)
  Receive Date: 20241105
  Receipt Date: 20241105
  Transmission Date: 20250114
  Serious: Yes (Other)
  Sender: GREER
  Company Number: US-STALCOR-2024-AER-02460

PATIENT
  Age: 19 Year
  Sex: Female

DRUGS (2)
  1. PALFORZIA [Suspect]
     Active Substance: PEANUT
     Indication: Food allergy
     Dosage: REACTIVE DOSE (LEVEL, DOSAGE, DATE OF THERAPY, LOT, EXPIRATION DATE-ALL UNKNOWN)
     Route: 048
  2. PALFORZIA [Suspect]
     Active Substance: PEANUT
     Dosage: IDE DOSE ON AN UNKNOWN DATE
     Route: 048

REACTIONS (6)
  - Anaphylactic reaction [Recovered/Resolved]
  - Throat tightness [Recovered/Resolved]
  - Urticaria [Recovered/Resolved]
  - Eye swelling [Recovered/Resolved]
  - Product dose omission issue [Recovered/Resolved]
  - Product use in unapproved therapeutic environment [Recovered/Resolved]

NARRATIVE: CASE EVENT DATE: 20240801
